FAERS Safety Report 25924485 (Version 2)
Quarter: 2025Q4

REPORT INFORMATION
  Report Type: Spontaneous
  Country: EU (occurrence: EU)
  Receive Date: 20251015
  Receipt Date: 20251031
  Transmission Date: 20260117
  Serious: Yes (Other)
  Sender: NOVARTIS
  Company Number: EU-002147023-NVSC2025IT156540

PATIENT
  Age: 2 Month
  Sex: Female

DRUGS (4)
  1. CYCLOSPORINE [Suspect]
     Active Substance: CYCLOSPORINE
     Indication: Haemophagocytic lymphohistiocytosis
     Dosage: UNK (AUGUST 8)
     Route: 048
  2. ANAKINRA [Concomitant]
     Active Substance: ANAKINRA
     Indication: Product used for unknown indication
     Dosage: 10 MG/KG
     Route: 042
  3. ANAKINRA [Concomitant]
     Active Substance: ANAKINRA
     Dosage: 20 MG/KG
     Route: 065
  4. METHYLPREDNISOLONE [Concomitant]
     Active Substance: METHYLPREDNISOLONE
     Indication: Thrombocytopenia
     Dosage: 3 MG/KG
     Route: 065

REACTIONS (3)
  - Drug ineffective [Unknown]
  - Secondary hypertension [Unknown]
  - Serum ferritin increased [Unknown]
